FAERS Safety Report 4682801-8 (Version None)
Quarter: 2005Q2

REPORT INFORMATION
  Report Type: 
  Country: None (occurrence: None)
  Receive Date: 20050531
  Receipt Date: 20041202
  Transmission Date: 20051028
  Serious: Yes (Other)
  Sender: FDA-Public Use
  Company Number: 200419243US

PATIENT
  Age: 70 Year
  Sex: Female

DRUGS (5)
  1. LOVENOX [Suspect]
     Indication: CARDIAC DISORDER
     Dosage: 100 MG Q12H SC
     Route: 058
     Dates: start: 20040703, end: 20040712
  2. REOPRO [Suspect]
     Indication: MYOCARDIAL INFARCTION
     Dosage: IV
     Route: 042
     Dates: start: 20040708, end: 20040708
  3. ASPIRIN [Concomitant]
  4. PLAVIX [Concomitant]
  5. WARFARIN SODIUM [Concomitant]

REACTIONS (1)
  - THROMBOCYTOPENIA [None]
